FAERS Safety Report 21992011 (Version 3)
Quarter: 2023Q2

REPORT INFORMATION
  Report Type: Spontaneous
  Country: JP (occurrence: JP)
  Receive Date: 20230214
  Receipt Date: 20230414
  Transmission Date: 20230722
  Serious: Yes (Other)
  Sender: FDA-Public Use
  Company Number: JP-002147023-NVSJ2023JP002791

PATIENT
  Age: 87 Year
  Sex: Male

DRUGS (2)
  1. GLYCOPYRROLATE\INDACATEROL\MOMETASONE FUROATE [Suspect]
     Active Substance: GLYCOPYRROLATE\INDACATEROL\MOMETASONE FUROATE
     Indication: Asthma
     Dosage: 1DF: INDACATEROL150UG,GLYCOPYRRONIUM50UG,MOMETASONE FUROATE80UG
     Dates: start: 2020
  2. GLYCOPYRROLATE\INDACATEROL\MOMETASONE FUROATE [Suspect]
     Active Substance: GLYCOPYRROLATE\INDACATEROL\MOMETASONE FUROATE
     Dosage: 1DF: INDACATEROL150UG,GLYCOPYRRONIUM50UG,MOMETASONE FUROATE160UG
     Dates: end: 20230206

REACTIONS (2)
  - Pseudomembranous colitis [Recovered/Resolved]
  - Haematochezia [Recovered/Resolved]

NARRATIVE: CASE EVENT DATE: 20230201
